FAERS Safety Report 4390819-8 (Version None)
Quarter: 2004Q3

REPORT INFORMATION
  Report Type: 
  Country: None (occurrence: None)
  Receive Date: 20040706
  Receipt Date: 20040706
  Transmission Date: 20050211
  Serious: Yes (Hospitalization)
  Sender: FDA-Public Use
  Company Number: None

PATIENT
  Age: 87 Year
  Sex: Female
  Weight: 66.04 kg

DRUGS (22)
  1. METHOTREXATE [Suspect]
     Indication: RHEUMATOID ARTHRITIS
     Dosage: 2.5 MG BID ON SATURDAY PO
     Route: 048
     Dates: start: 20000801, end: 20040624
  2. SULFASALAZINE [Suspect]
     Indication: RHEUMATOID ARTHRITIS
     Dosage: 500 MG PO BID
     Route: 048
     Dates: start: 20000801, end: 20040624
  3. FOLATE [Concomitant]
  4. PREMARIN [Concomitant]
  5. ASPIRIN [Concomitant]
  6. COLACE [Concomitant]
  7. LASIX [Concomitant]
  8. PREDNISONE [Concomitant]
  9. VERAPAMIL [Concomitant]
  10. SYNTHROID [Concomitant]
  11. LISINOPRIL [Concomitant]
  12. ZOLOFT [Concomitant]
  13. TRIAMTERENE AND HYDROCHLOROTHIAZIDE [Concomitant]
  14. INDERAL LA [Concomitant]
  15. PLAQUENIL [Concomitant]
  16. PRANDIN [Concomitant]
  17. QUININE [Concomitant]
  18. POTASSIUM [Concomitant]
  19. GLUCONATE [Concomitant]
  20. TETRACYCLINE [Concomitant]
  21. FLAGYL [Concomitant]
  22. PEPO-BISMOL [Concomitant]

REACTIONS (7)
  - ALANINE AMINOTRANSFERASE INCREASED [None]
  - ASPARTATE AMINOTRANSFERASE INCREASED [None]
  - CHROMATURIA [None]
  - DEHYDRATION [None]
  - HELICOBACTER INFECTION [None]
  - MENTAL STATUS CHANGES [None]
  - URINARY TRACT INFECTION [None]
